FAERS Safety Report 25667256 (Version 1)
Quarter: 2025Q3

REPORT INFORMATION
  Report Type: Spontaneous
  Country: US (occurrence: US)
  Receive Date: 20250811
  Receipt Date: 20250811
  Transmission Date: 20251020
  Serious: No
  Sender: GALDERMA
  Company Number: US-GALDERMA-US2025012035

PATIENT

DRUGS (1)
  1. NEMLUVIO [Suspect]
     Active Substance: NEMOLIZUMAB-ILTO
     Indication: Dermatitis atopic
     Route: 058
     Dates: start: 20250621, end: 20250621

REACTIONS (3)
  - Oedema peripheral [Not Recovered/Not Resolved]
  - Skin exfoliation [Not Recovered/Not Resolved]
  - Dermatitis [Not Recovered/Not Resolved]

NARRATIVE: CASE EVENT DATE: 20250622
